FAERS Safety Report 23169974 (Version 1)
Quarter: 2023Q4

REPORT INFORMATION
  Report Type: Spontaneous
  Country: US (occurrence: US)
  Receive Date: 20231110
  Receipt Date: 20231110
  Transmission Date: 20240109
  Serious: No
  Sender: FDA-Public Use
  Company Number: US-JNJFOC-20231101337

PATIENT
  Sex: Female

DRUGS (2)
  1. TYLENOL [Suspect]
     Active Substance: ACETAMINOPHEN
     Indication: Product used for unknown indication
     Dosage: USUALLY, ALWAYS TAKE 1 AT A TIME AND ALSO TOOK 2
     Route: 065
  2. TYLENOL [Suspect]
     Active Substance: ACETAMINOPHEN
     Dosage: USUALLY, ALWAYS TAKE 1 AT A TIME AND ALSO TOOK 2
     Route: 065

REACTIONS (2)
  - Condition aggravated [Unknown]
  - Incorrect dose administered [Unknown]
